FAERS Safety Report 25890702 (Version 5)
Quarter: 2025Q4

REPORT INFORMATION
  Report Type: Report from Study
  Country: US (occurrence: US)
  Receive Date: 20251007
  Receipt Date: 20251216
  Transmission Date: 20260117
  Serious: No
  Sender: MALLINCKRODT
  Company Number: US-MALLINCKRODT-MNK202506212

PATIENT
  Sex: Female
  Weight: 169 kg

DRUGS (6)
  1. CORTICOTROPIN [Suspect]
     Active Substance: CORTICOTROPIN
     Indication: Polymyositis
     Dosage: 80 UNITS
     Route: 058
     Dates: start: 20250926, end: 2025
  2. CORTICOTROPIN [Suspect]
     Active Substance: CORTICOTROPIN
     Indication: Myopathy
  3. CORTICOTROPIN [Suspect]
     Active Substance: CORTICOTROPIN
     Indication: Polymyositis
     Dosage: UNKNOWN
     Dates: start: 2025
  4. CORTICOTROPIN [Suspect]
     Active Substance: CORTICOTROPIN
     Indication: Myopathy
  5. WEGOVY [Suspect]
     Active Substance: SEMAGLUTIDE
     Indication: Product used for unknown indication
     Dosage: UNKNOWN
  6. IRON [Concomitant]
     Active Substance: IRON
     Dosage: UNKNOWN

REACTIONS (11)
  - Arthralgia [Unknown]
  - Weight fluctuation [Unknown]
  - Blood calcium increased [Unknown]
  - Pollakiuria [Unknown]
  - Fluid retention [Unknown]
  - Weight increased [Recovering/Resolving]
  - Injection site scar [Recovered/Resolved]
  - Injection site pain [Recovered/Resolved]
  - Injection site mass [Unknown]
  - Injection site bruising [Unknown]
  - Peripheral swelling [Recovered/Resolved]

NARRATIVE: CASE EVENT DATE: 20250101
